FAERS Safety Report 16968858 (Version 2)
Quarter: 2019Q4

REPORT INFORMATION
  Report Type: Spontaneous
  Country: IT (occurrence: IT)
  Receive Date: 20191029
  Receipt Date: 20191106
  Transmission Date: 20200122
  Serious: Yes (Hospitalization)
  Sender: FDA-Public Use
  Company Number: IT-TEVA-2019-IT-1128507

PATIENT
  Age: 50 Year
  Sex: Female
  Weight: 80 kg

DRUGS (2)
  1. FLUVOXAMINE MALEATE. [Suspect]
     Active Substance: FLUVOXAMINE MALEATE
     Indication: MENTAL DISORDER
     Dosage: 50 MILLIGRAM
     Route: 048
     Dates: start: 20190927, end: 20191003
  2. CLOZAPINE. [Suspect]
     Active Substance: CLOZAPINE
     Indication: MENTAL DISORDER
     Dosage: 200 MILLIGRAM
     Route: 048
     Dates: start: 20151003, end: 20191003

REACTIONS (2)
  - Anxiety [Unknown]
  - Drug level increased [Unknown]

NARRATIVE: CASE EVENT DATE: 20191003
